FAERS Safety Report 20858097 (Version 1)
Quarter: 2022Q2

REPORT INFORMATION
  Report Type: Spontaneous
  Country: RO (occurrence: RO)
  Receive Date: 20220521
  Receipt Date: 20220521
  Transmission Date: 20220721
  Serious: Yes (Hospitalization)
  Sender: FDA-Public Use
  Company Number: RO-LUPIN PHARMACEUTICALS INC.-2022-07247

PATIENT
  Age: 46 Year
  Sex: Male

DRUGS (11)
  1. METOCLOPRAMIDE [Suspect]
     Active Substance: METOCLOPRAMIDE
     Indication: Hiccups
     Dosage: UNK
     Route: 065
  2. METHYLPREDNISOLONE [Concomitant]
     Active Substance: METHYLPREDNISOLONE
     Indication: COVID-19
     Dosage: 250 MG, QD
     Route: 042
  3. DEXAMETHASONE [Concomitant]
     Active Substance: DEXAMETHASONE
     Indication: COVID-19
     Dosage: 10 MG, BID (2 TIMES PER DAY)
     Route: 048
  4. IVERMECTIN [Concomitant]
     Active Substance: IVERMECTIN
     Indication: COVID-19
     Dosage: 12 MG, QD (1 TIME PER DAY)
     Route: 048
  5. ENOXAPARIN [Concomitant]
     Active Substance: ENOXAPARIN
     Indication: COVID-19
     Dosage: 60 MG IN 0.6 ML, 1 SINGLE DOSE SYRINGE PER DAY
     Route: 058
  6. PANTOPRAZOLE [Concomitant]
     Active Substance: PANTOPRAZOLE
     Indication: COVID-19
     Dosage: 40 MG, QD
     Route: 048
  7. ACETAMINOPHEN [Concomitant]
     Active Substance: ACETAMINOPHEN
     Indication: COVID-19
     Dosage: 500 MG, PRN (AS NEEDED)
     Route: 048
  8. REMDESIVIR [Concomitant]
     Active Substance: REMDESIVIR
     Indication: COVID-19
     Dosage: 200 MG, QD LOADING DOSE (ON THE FIRST DAY OF ADMISSION)
     Route: 042
  9. REMDESIVIR [Concomitant]
     Active Substance: REMDESIVIR
     Dosage: 100 MG, QD (FOR THE FOLLOWING 5 DAYS)
     Route: 042
  10. ONDANSETRON [Concomitant]
     Active Substance: ONDANSETRON
     Indication: COVID-19
     Dosage: 4 MG, BID (2 TIMES PER DAY)
     Route: 042
  11. DROTAVERINE HYDROCHLORIDE [Concomitant]
     Active Substance: DROTAVERINE HYDROCHLORIDE
     Indication: COVID-19
     Dosage: 40 MG, TID (3 TIMES PER DAY)
     Route: 042

REACTIONS (2)
  - Drug ineffective for unapproved indication [Unknown]
  - Off label use [Unknown]
